FAERS Safety Report 8534686-7 (Version None)
Quarter: 2012Q3

REPORT INFORMATION
  Report Type: 
  Country: None (occurrence: None)
  Receive Date: 20120724
  Receipt Date: 20120716
  Transmission Date: 20120928
  Serious: Yes (Other)
  Sender: FDA-Public Use
  Company Number: US-GLAXOSMITHKLINE-A0984590A

PATIENT
  Sex: Female

DRUGS (18)
  1. FISH OIL [Concomitant]
  2. MULTI-VITAMIN [Concomitant]
  3. MULTI-VITAMINS [Concomitant]
  4. VITAMIN B6 [Concomitant]
  5. UNSPECIFIED MEDICATION [Concomitant]
  6. TRAMADOL HYDROCHLORIDE [Concomitant]
  7. ADVAIR DISKUS 100/50 [Suspect]
     Indication: ASTHMA
     Dosage: 1PUFF TWICE PER DAY
     Route: 055
     Dates: start: 20030101
  8. ALEVE [Concomitant]
  9. METOPROLOL TARTRATE [Concomitant]
  10. LOSARTAN POTASSIUM [Concomitant]
  11. SIMVASTATIN [Concomitant]
  12. LEVOTHYROXINE SODIUM [Concomitant]
  13. ARTIFICIAL TEARS [Concomitant]
  14. DORZOLAMIDE HYDROCHLORIDE [Concomitant]
  15. OMEPRAZOLE [Concomitant]
  16. ASPIRIN [Concomitant]
  17. AMLODIPINE BESYLATE [Concomitant]
  18. VENTOLIN HFA [Concomitant]

REACTIONS (5)
  - GLAUCOMA [None]
  - HYPERTENSION [None]
  - DRUG INEFFECTIVE [None]
  - THYROID DISORDER [None]
  - DYSPNOEA [None]
